FAERS Safety Report 15758195 (Version 5)
Quarter: 2024Q4

REPORT INFORMATION
  Report Type: Spontaneous
  Country: CA (occurrence: CA)
  Receive Date: 20181225
  Receipt Date: 20241221
  Transmission Date: 20250115
  Serious: Yes (Hospitalization, Other)
  Sender: CELLTRION
  Company Number: CA-CELLTRION INC.-2018CA021185

PATIENT

DRUGS (18)
  1. INFLECTRA [Suspect]
     Active Substance: INFLIXIMAB-DYYB
     Indication: Crohn^s disease
     Dosage: 400 MG, (WEEKS 0, 2, 6, THEN EVERY 8 WEEKS)
     Route: 042
     Dates: start: 20180313, end: 20180313
  2. INFLECTRA [Suspect]
     Active Substance: INFLIXIMAB-DYYB
     Dosage: 400 MG, (WEEKS 0, 2, 6, THEN EVERY 8 WEEKS)
     Route: 042
     Dates: start: 20180619, end: 20180619
  3. INFLECTRA [Suspect]
     Active Substance: INFLIXIMAB-DYYB
     Dosage: 400 MG, (WEEKS 0, 2, 6, THEN EVERY 8 WEEKS)
     Route: 042
     Dates: start: 20180819, end: 20180819
  4. INFLECTRA [Suspect]
     Active Substance: INFLIXIMAB-DYYB
     Dosage: 400 MG, (WEEKS 0, 2, 6, THEN EVERY 8 WEEKS)
     Route: 042
     Dates: start: 20181012, end: 20181012
  5. INFLECTRA [Suspect]
     Active Substance: INFLIXIMAB-DYYB
     Dosage: 400 MG, WEEKS 0, 2, 6, THEN EVERY 8 WEEKS
     Route: 042
     Dates: start: 20181211, end: 20181211
  6. INFLECTRA [Suspect]
     Active Substance: INFLIXIMAB-DYYB
     Dosage: 400 MG, EVERY 7 WEEKS
     Route: 042
     Dates: start: 20190129, end: 20190129
  7. AZATHIOPRINE [Concomitant]
     Active Substance: AZATHIOPRINE
     Dosage: 50 MG, 1X/DAY (ONCE IN MORNING)
     Route: 065
  8. PREDNISONE [Concomitant]
     Active Substance: PREDNISONE
     Dosage: 5 MG, 1X/DAY (ONCE IN MORNING FOR 9 WEEKS)
     Dates: start: 20181231
  9. CALCIUM CARBONATE [Concomitant]
     Active Substance: CALCIUM CARBONATE
     Dosage: UNK, DAILY
     Route: 065
  10. VITAMIN D [Concomitant]
     Active Substance: VITAMIN D NOS
     Dosage: UNK, 1X/DAY (ONLY WHILE ON PREDNISONE)
     Route: 065
  11. FUROSEMIDE [Concomitant]
     Active Substance: FUROSEMIDE
     Dosage: 40 MG, 1X/DAY (FOR 10 DAYS)
     Route: 065
  12. ACETAMINOPHEN [Concomitant]
     Active Substance: ACETAMINOPHEN
     Dosage: 500 MG, UNK
     Route: 048
     Dates: start: 20180619, end: 20180619
  13. ACETAMINOPHEN [Concomitant]
     Active Substance: ACETAMINOPHEN
     Dosage: 500 MG, UNK
     Dates: start: 20180819, end: 20180819
  14. ACETAMINOPHEN [Concomitant]
     Active Substance: ACETAMINOPHEN
     Dosage: 1000 MG, UNK
     Route: 048
     Dates: start: 20181012, end: 20181012
  15. HYDROCORTISONE [Concomitant]
     Active Substance: HYDROCORTISONE
     Dosage: 100 MG, UNK
     Route: 042
     Dates: start: 20180619, end: 20180619
  16. HYDROCORTISONE [Concomitant]
     Active Substance: HYDROCORTISONE
     Dosage: 100 MG, UNK
     Route: 042
     Dates: start: 20180819, end: 20180819
  17. METOPROLOL [Concomitant]
     Active Substance: METOPROLOL
     Dosage: 1 DF (TABLET), 2X/DAY (FOR 30 DAYS)
     Route: 065
  18. METRONIDAZOLE BENZOATE [Concomitant]
     Active Substance: METRONIDAZOLE BENZOATE
     Dosage: 250 MG, 3X/DAY
     Dates: start: 20181231

REACTIONS (14)
  - Anal abscess [Not Recovered/Not Resolved]
  - Colostomy [Unknown]
  - Rectal abscess [Unknown]
  - Umbilical hernia [Unknown]
  - Cataract [Unknown]
  - Drug ineffective [Unknown]
  - Blood pressure fluctuation [Unknown]
  - Cyst [Unknown]
  - Proctalgia [Not Recovered/Not Resolved]
  - Diarrhoea [Not Recovered/Not Resolved]
  - Drug specific antibody present [Unknown]
  - Musculoskeletal discomfort [Unknown]
  - Dyspepsia [Unknown]
  - Off label use [Unknown]

NARRATIVE: CASE EVENT DATE: 20180101
